FAERS Safety Report 6192441-X (Version None)
Quarter: 2009Q2

REPORT INFORMATION
  Report Type: 
  Country: None (occurrence: None)
  Receive Date: 20090513
  Receipt Date: 20090513
  Transmission Date: 20091009
  Serious: No
  Sender: FDA-Public Use
  Company Number: None

PATIENT
  Sex: Female
  Weight: 49.8957 kg

DRUGS (1)
  1. KEPPRA [Suspect]
     Indication: BRAIN INJURY
     Dosage: 1,000 MG TID 30 DAY

REACTIONS (3)
  - COMPLEX PARTIAL SEIZURES [None]
  - ECONOMIC PROBLEM [None]
  - PRODUCT SUBSTITUTION ISSUE [None]
